FAERS Safety Report 4808537-8 (Version None)
Quarter: 2005Q4

REPORT INFORMATION
  Report Type: 
  Country: None (occurrence: None)
  Receive Date: 20051021
  Receipt Date: 20040308
  Transmission Date: 20060501
  Serious: No
  Sender: FDA-Public Use
  Company Number: FR_040303709

PATIENT
  Age: 80 Year
  Sex: Female

DRUGS (1)
  1. ZYPREXA [Suspect]
     Indication: DELIRIUM
     Dosage: 10 MG/1 DAY
     Dates: start: 20030101, end: 20040226

REACTIONS (2)
  - LEUKOPENIA [None]
  - NEUTROPENIA [None]
